FAERS Safety Report 14224155 (Version 2)
Quarter: 2017Q4

REPORT INFORMATION
  Report Type: Spontaneous
  Country: DE (occurrence: DE)
  Receive Date: 20171126
  Receipt Date: 20171226
  Transmission Date: 20180321
  Serious: Yes (Hospitalization, Other)
  Sender: FDA-Public Use
  Company Number: PHHY2017DE173079

PATIENT
  Age: 51 Year
  Sex: Female
  Weight: 66 kg

DRUGS (1)
  1. COSENTYX [Suspect]
     Active Substance: SECUKINUMAB
     Indication: PSORIATIC ARTHROPATHY
     Dosage: UNK
     Route: 058
     Dates: start: 201701, end: 201709

REACTIONS (9)
  - Staphylococcal infection [Unknown]
  - Haematochezia [Unknown]
  - Colitis ulcerative [Unknown]
  - Pyrexia [Unknown]
  - Septic shock [Unknown]
  - Enterocolitis haemorrhagic [Recovering/Resolving]
  - Lower gastrointestinal haemorrhage [Unknown]
  - Weight decreased [Unknown]
  - Diarrhoea [Unknown]

NARRATIVE: CASE EVENT DATE: 20170723
